FAERS Safety Report 9877172 (Version 1)
Quarter: 2014Q1

REPORT INFORMATION
  Report Type: Spontaneous
  Country: KR (occurrence: KR)
  Receive Date: 20140206
  Receipt Date: 20140206
  Transmission Date: 20141002
  Serious: Yes (Other)
  Sender: FDA-Public Use
  Company Number: KR-JNJFOC-20140116642

PATIENT
  Age: 47 Year
  Sex: Male

DRUGS (6)
  1. DUROGESIC D-TRANS [Suspect]
     Indication: PAIN
     Route: 062
     Dates: start: 201311
  2. DUROGESIC D-TRANS [Suspect]
     Indication: PAIN
     Route: 062
  3. DUROGESIC D-TRANS [Suspect]
     Indication: PAIN
     Route: 062
  4. DUROGESIC D-TRANS [Suspect]
     Indication: CHEST PAIN
     Route: 062
  5. DUROGESIC D-TRANS [Suspect]
     Indication: CHEST PAIN
     Route: 062
  6. DUROGESIC D-TRANS [Suspect]
     Indication: CHEST PAIN
     Route: 062
     Dates: start: 201311

REACTIONS (4)
  - Drug dependence [Unknown]
  - Drug ineffective [Not Recovered/Not Resolved]
  - Lethargy [Not Recovered/Not Resolved]
  - Treatment noncompliance [Unknown]
